FAERS Safety Report 8771991 (Version 3)
Quarter: 2012Q4

REPORT INFORMATION
  Report Type: 
  Country: US (occurrence: US)
  Receive Date: 20120906
  Receipt Date: 20121226
  Transmission Date: 20130627
  Serious: Yes (Other)
  Sender: FDA-Public Use
  Company Number: US-JNJFOC-20120812417

PATIENT
  Sex: Male
  Weight: 83.92 kg

DRUGS (6)
  1. FENTANYL [Suspect]
     Indication: PAIN
     Route: 062
     Dates: start: 2011, end: 2011
  2. LISINOPRIL [Concomitant]
     Indication: BLOOD PRESSURE
     Route: 065
  3. METFORMIN [Concomitant]
     Indication: TYPE 2 DIABETES MELLITUS
     Route: 065
     Dates: start: 2011
  4. TRICOR [Concomitant]
     Indication: TYPE 2 DIABETES MELLITUS
     Route: 065
     Dates: start: 2011
  5. DURAGESIC [Suspect]
     Indication: PAIN
     Route: 062
     Dates: start: 2004, end: 2011
  6. DURAGESIC [Suspect]
     Indication: PAIN
     Route: 062
     Dates: start: 2011

REACTIONS (14)
  - Loss of consciousness [Recovered/Resolved]
  - Muscle twitching [Recovered/Resolved]
  - Pain [Recovered/Resolved]
  - Tremor [Recovered/Resolved]
  - Drug effect decreased [Unknown]
  - Nausea [Recovered/Resolved]
  - Vomiting [Recovered/Resolved]
  - Hyperhidrosis [Recovered/Resolved]
  - Feeling abnormal [Recovered/Resolved]
  - Dizziness [Recovered/Resolved]
  - Insomnia [Recovered/Resolved]
  - Inappropriate schedule of drug administration [Unknown]
  - Product substitution issue [None]
  - Product quality issue [None]
